FAERS Safety Report 17502201 (Version 1)
Quarter: 2020Q1

REPORT INFORMATION
  Report Type: Spontaneous
  Country: US (occurrence: US)
  Receive Date: 20200225
  Receipt Date: 20200225
  Transmission Date: 20200409
  Serious: No
  Sender: FDA-Public Use
  Company Number: None

PATIENT
  Sex: Female

DRUGS (1)
  1. PROLIA [Suspect]
     Active Substance: DENOSUMAB
     Dosage: ?          OTHER FREQUENCY:EVERY6MONTHS ;?
     Route: 058
     Dates: start: 20200116

REACTIONS (2)
  - Dry skin [None]
  - Skin exfoliation [None]
